FAERS Safety Report 23573078 (Version 4)
Quarter: 2024Q2

REPORT INFORMATION
  Report Type: Report from Study
  Country: US (occurrence: US)
  Receive Date: 20240227
  Receipt Date: 20240512
  Transmission Date: 20240716
  Serious: No
  Sender: FDA-Public Use
  Company Number: US-AstraZeneca-CH-00574283A

PATIENT
  Sex: Female

DRUGS (1)
  1. ULTOMIRIS [Suspect]
     Active Substance: RAVULIZUMAB-CWVZ
     Indication: Product used for unknown indication
     Dosage: UNK
     Route: 065

REACTIONS (8)
  - Malaise [Unknown]
  - Nervousness [Unknown]
  - Visual impairment [Unknown]
  - Hyperhidrosis [Unknown]
  - Asthenia [Unknown]
  - Fatigue [Unknown]
  - Muscle spasms [Unknown]
  - Dyspnoea [Unknown]
